FAERS Safety Report 10067303 (Version 1)
Quarter: 2014Q2

REPORT INFORMATION
  Report Type: Spontaneous
  Country: US (occurrence: None)
  Receive Date: 20140408
  Receipt Date: 20140408
  Transmission Date: 20141212
  Serious: Yes (Life-Threatening)
  Sender: FDA-Public Use
  Company Number: None

PATIENT
  Age: 74 Year
  Sex: Female
  Weight: 73.03 kg

DRUGS (1)
  1. VICTOZA [Suspect]
     Indication: TYPE 2 DIABETES MELLITUS
     Dosage: 0.6 MG DAILY SQ
     Route: 058
     Dates: start: 20131218, end: 20131230

REACTIONS (4)
  - Pancreatitis acute [None]
  - Bile duct obstruction [None]
  - Adenocarcinoma pancreas [None]
  - Road traffic accident [None]
